FAERS Safety Report 4410876-X (Version None)
Quarter: 2004Q2

REPORT INFORMATION
  Report Type: 
  Country: None (occurrence: None)
  Receive Date: 20040630
  Receipt Date: 20040416
  Transmission Date: 20050107
  Serious: No
  Sender: FDA-Public Use
  Company Number: 04P-163-0257720-00

PATIENT
  Age: 78 Year
  Sex: Male

DRUGS (9)
  1. HUMIRA [Suspect]
     Indication: RHEUMATOID ARTHRITIS
     Dosage: 40 MG, 1 IN 2 WK, SUBCUTANEOUS
     Route: 058
  2. ANTIBIOTICS [Concomitant]
  3. PREDNISONE [Concomitant]
  4. PENICILLAMINE [Concomitant]
  5. METHOTREXATE [Concomitant]
  6. LEFLUNOMIDE [Concomitant]
  7. AMLODIPINE BESYLATE [Concomitant]
  8. ORCLOCENIR [Concomitant]
  9. CEPHALEXIN MONOHYDRATE [Concomitant]

REACTIONS (2)
  - ERYTHEMA [None]
  - PRURITUS [None]
